FAERS Safety Report 5464347-2 (Version None)
Quarter: 2007Q3

REPORT INFORMATION
  Report Type: 
  Country: None (occurrence: None)
  Receive Date: 20070921
  Receipt Date: 20070912
  Transmission Date: 20080115
  Serious: Yes (Other)
  Sender: FDA-Public Use
  Company Number: AU-ROCHE-516735

PATIENT
  Age: 74 Year
  Sex: Male
  Weight: 74 kg

DRUGS (3)
  1. XELODA [Suspect]
     Dosage: TAKEN DAILY
     Route: 048
     Dates: start: 20070327
  2. OXALIPLATIN [Suspect]
     Indication: DRUG USE FOR UNKNOWN INDICATION
     Route: 042
     Dates: start: 20070327
  3. PLACEBO [Concomitant]
     Dosage: TAKEN DAILY; DRUG NAME REPORTED: AZD2171
     Route: 048
     Dates: start: 20070327

REACTIONS (2)
  - HAEMOLYSIS [None]
  - HAEMOLYTIC ANAEMIA [None]
